FAERS Safety Report 7899548-7 (Version None)
Quarter: 2011Q4

REPORT INFORMATION
  Report Type: 
  Country: None (occurrence: None)
  Receive Date: 20111107
  Receipt Date: 20110915
  Transmission Date: 20120403
  Serious: No
  Sender: FDA-Public Use
  Company Number: US-AMGEN-USASP2011047694

PATIENT
  Age: 49 Year
  Sex: Female

DRUGS (5)
  1. ENBREL [Suspect]
     Indication: SJOGREN'S SYNDROME
  2. ENBREL [Suspect]
     Indication: RHEUMATOID ARTHRITIS
     Dosage: 50 MG, QWK
     Dates: start: 20101001
  3. ENBREL [Suspect]
     Indication: SYSTEMIC LUPUS ERYTHEMATOSUS
  4. PLAQUENIL [Concomitant]
     Dosage: 1 MG, BID
     Dates: start: 20100301
  5. TREXALL [Concomitant]
     Dosage: 1 MG, QWK
     Dates: start: 20100101

REACTIONS (5)
  - FATIGUE [None]
  - MUSCLE TIGHTNESS [None]
  - ASTHENIA [None]
  - RHEUMATOID ARTHRITIS [None]
  - GAIT DISTURBANCE [None]
